FAERS Safety Report 21691951 (Version 1)
Quarter: 2022Q4

REPORT INFORMATION
  Report Type: Spontaneous
  Country: US (occurrence: US)
  Receive Date: 20221207
  Receipt Date: 20221207
  Transmission Date: 20230113
  Serious: No
  Sender: FDA-Public Use
  Company Number: US-GLENMARK PHARMACEUTICALS-2022GMK072727

PATIENT

DRUGS (2)
  1. ZONISAMIDE [Suspect]
     Active Substance: ZONISAMIDE
     Indication: Seizure
     Dosage: 2 DOSAGE FORM, HS
     Route: 048
     Dates: start: 20220210
  2. ZONISAMIDE [Suspect]
     Active Substance: ZONISAMIDE
     Dosage: 2 DOSAGE FORM, HS
     Route: 048

REACTIONS (3)
  - Recalled product administered [Unknown]
  - Depressed mood [Not Recovered/Not Resolved]
  - Fatigue [Not Recovered/Not Resolved]

NARRATIVE: CASE EVENT DATE: 20220301
